FAERS Safety Report 17308275 (Version 1)
Quarter: 2020Q1

REPORT INFORMATION
  Report Type: Spontaneous
  Country: US (occurrence: US)
  Receive Date: 20200122
  Receipt Date: 20200122
  Transmission Date: 20200409
  Serious: Yes (Other)
  Sender: FDA-Public Use
  Company Number: None

PATIENT
  Age: 69 Year
  Sex: Female

DRUGS (9)
  1. HUMIRA [Suspect]
     Active Substance: ADALIMUMAB
     Indication: CROHN^S DISEASE
     Dosage: ?          OTHER FREQUENCY:EVERY OTHER WEEK;?
     Route: 058
     Dates: start: 20191107
  2. TERAZOSIN CAP 10MG [Concomitant]
  3. VERAPAMIL TAB 120 MG ER [Concomitant]
  4. PREDISONE TAB 1MG [Concomitant]
  5. METRONIDAZOL TAB 500MG [Concomitant]
  6. SULFASALAZIN TAB 500MG [Concomitant]
  7. FOLIC ACID TAB 1000MCG [Concomitant]
  8. TRAMADOL HCL TAB 50MG [Concomitant]
  9. CIPROFLOXACN TAB 500 MG [Concomitant]

REACTIONS (4)
  - Arthralgia [None]
  - Vomiting [None]
  - Pyrexia [None]
  - Intestinal obstruction [None]

NARRATIVE: CASE EVENT DATE: 20191201
